FAERS Safety Report 7596333-0 (Version None)
Quarter: 2011Q3

REPORT INFORMATION
  Report Type: 
  Country: None (occurrence: None)
  Receive Date: 20110707
  Receipt Date: 20110628
  Transmission Date: 20111222
  Serious: Yes (Hospitalization, Other)
  Sender: FDA-Public Use
  Company Number: US-ASTRAZENECA-2011SE38738

PATIENT
  Age: 69 Year
  Sex: Female

DRUGS (2)
  1. FASLODEX [Suspect]
     Indication: BREAST CANCER METASTATIC
     Route: 030
     Dates: start: 20110531
  2. ARIMIDEX [Suspect]
     Indication: BREAST CANCER
     Dosage: DAILY
     Route: 048
     Dates: start: 20060101, end: 20110501

REACTIONS (8)
  - LYMPHADENECTOMY [None]
  - INJECTION SITE MOVEMENT IMPAIRMENT [None]
  - INJECTION SITE OEDEMA [None]
  - ABASIA [None]
  - INJECTION SITE PAIN [None]
  - BREAST CANCER RECURRENT [None]
  - BIOPSY [None]
  - MEDIASTINAL MASS [None]
